FAERS Safety Report 6547307-X (Version None)
Quarter: 2010Q1

REPORT INFORMATION
  Report Type: 
  Country: None (occurrence: None)
  Receive Date: 20100122
  Receipt Date: 20100115
  Transmission Date: 20100710
  Serious: Yes (Hospitalization)
  Sender: FDA-Public Use
  Company Number: SE-PFIZER INC-2010005641

PATIENT
  Age: 69 Year
  Sex: Female

DRUGS (1)
  1. SALAZOPYRIN [Suspect]
     Indication: SPONDYLOARTHROPATHY
     Dosage: 2 G DAILY
     Route: 048
     Dates: start: 20091015, end: 20091111

REACTIONS (3)
  - AGRANULOCYTOSIS [None]
  - INTERNATIONAL NORMALISED RATIO INCREASED [None]
  - TRANSAMINASES INCREASED [None]
